FAERS Safety Report 11317048 (Version 1)
Quarter: 2015Q3

REPORT INFORMATION
  Report Type: Spontaneous
  Country: CH (occurrence: CH)
  Receive Date: 20150728
  Receipt Date: 20150728
  Transmission Date: 20151125
  Serious: Yes (Hospitalization)
  Sender: FDA-Public Use
  Company Number: CH-PFIZER INC-2015244379

PATIENT
  Age: 57 Year
  Sex: Female
  Weight: 64 kg

DRUGS (4)
  1. PALLADON-SR [Concomitant]
     Dosage: 16 MG, 2X/DAY
     Route: 048
  2. PANTOZOL [Concomitant]
     Active Substance: PANTOPRAZOLE SODIUM
     Dosage: 40 MG, 1X/DAY
     Route: 048
  3. XELODA [Suspect]
     Active Substance: CAPECITABINE
     Indication: INVASIVE DUCTAL BREAST CARCINOMA
     Dosage: 1500 MG DAILY, FOR 14 DAYS EVERY 21 DAYS
     Route: 048
     Dates: start: 20150506, end: 20150519
  4. ALDACTONE [Suspect]
     Active Substance: SPIRONOLACTONE
     Dosage: 50 MG, 1X/DAY
     Route: 048
     Dates: end: 20150526

REACTIONS (2)
  - Hyponatraemia [Recovered/Resolved]
  - Normochromic normocytic anaemia [Recovering/Resolving]

NARRATIVE: CASE EVENT DATE: 20150526
